FAERS Safety Report 23020237 (Version 1)
Quarter: 2023Q4

REPORT INFORMATION
  Report Type: Spontaneous
  Country: CN (occurrence: CN)
  Receive Date: 20231003
  Receipt Date: 20231003
  Transmission Date: 20240110
  Serious: Yes (Hospitalization, Other)
  Sender: FDA-Public Use
  Company Number: CN-009507513-2309CHN009979

PATIENT
  Age: 73 Year
  Sex: Female
  Weight: 60 kg

DRUGS (2)
  1. CILASTATIN SODIUM\IMIPENEM [Suspect]
     Active Substance: CILASTATIN SODIUM\IMIPENEM
     Indication: Infection
     Dosage: DOSE: 0.5 G (ALSO REPORTED AS 1.5 G), FREQUENCY: EVERY 8 HOURS (Q8H) (ALSO REPORTED AS QD)
     Route: 041
     Dates: start: 20230919, end: 20230923
  2. SODIUM CHLORIDE [Concomitant]
     Active Substance: SODIUM CHLORIDE
     Indication: Medication dilution
     Dosage: DOSE: 100 ML, FREQUENCY: Q8H
     Route: 041
     Dates: start: 20230919, end: 20230923

REACTIONS (24)
  - Epilepsy [Recovering/Resolving]
  - Heart rate abnormal [Unknown]
  - Oxygen saturation abnormal [Unknown]
  - Blood pressure abnormal [Unknown]
  - Troponin I increased [Unknown]
  - N-terminal prohormone brain natriuretic peptide increased [Unknown]
  - Carbon dioxide decreased [Unknown]
  - Blood glucose increased [Unknown]
  - Blood calcium decreased [Unknown]
  - Eosinophil percentage decreased [Unknown]
  - Mean cell volume increased [Unknown]
  - Mean cell haemoglobin concentration decreased [Unknown]
  - Red cell distribution width increased [Unknown]
  - Mean platelet volume increased [Unknown]
  - Neutrophil count increased [Unknown]
  - White blood cell count increased [Unknown]
  - Blood chloride increased [Unknown]
  - Eosinophil count decreased [Unknown]
  - Lymphocyte count increased [Unknown]
  - Haematocrit decreased [Unknown]
  - Red blood cell count decreased [Unknown]
  - Blood urea increased [Unknown]
  - Blood creatinine increased [Unknown]
  - Haemoglobin decreased [Unknown]

NARRATIVE: CASE EVENT DATE: 20230901
